FAERS Safety Report 5709125-1 (Version None)
Quarter: 2008Q2

REPORT INFORMATION
  Report Type: 
  Country: None (occurrence: None)
  Receive Date: 20080416
  Receipt Date: 20080416
  Transmission Date: 20081010
  Serious: Yes (Disabling, Other)
  Sender: FDA-Public Use
  Company Number: None

PATIENT
  Age: 96 Year
  Sex: Female
  Weight: 54.8852 kg

DRUGS (1)
  1. ARICEPT [Suspect]
     Indication: AMNESIA
     Dates: start: 20071103, end: 20071203

REACTIONS (4)
  - HALLUCINATION [None]
  - INSOMNIA [None]
  - MENTAL DISORDER [None]
  - PARANOIA [None]
